FAERS Safety Report 6287255-6 (Version None)
Quarter: 2009Q3

REPORT INFORMATION
  Report Type: 
  Country: None (occurrence: None)
  Receive Date: 20090728
  Receipt Date: 20090717
  Transmission Date: 20100115
  Serious: Yes (Other)
  Sender: FDA-Public Use
  Company Number: PHHY2009BR29748

PATIENT
  Sex: Male
  Weight: 66 kg

DRUGS (4)
  1. EXELON [Suspect]
     Indication: DEMENTIA ALZHEIMER'S TYPE
     Dosage: 9MG/5CM2 1 PATCH/DAY
     Route: 062
     Dates: start: 20090501
  2. METFORMIN [Concomitant]
     Indication: DIABETES MELLITUS
     Dosage: 500 MG 1 TABLET IN THE MORNING AND 1 TABLET AT NIGHT
     Route: 048
  3. LIPITOR [Concomitant]
     Indication: BLOOD TRIGLYCERIDES INCREASED
     Dosage: 20 MG, 1 TABLET AT NIGHT
     Route: 048
  4. CIPROFIBRATE [Concomitant]
     Indication: BLOOD CHOLESTEROL
     Dosage: 100 MG, 1 TABLET IN THE MORNING
     Route: 048

REACTIONS (3)
  - APPLICATION SITE VESICLES [None]
  - BLISTER [None]
  - BURNING SENSATION [None]
